FAERS Safety Report 12520709 (Version 1)
Quarter: 2016Q3

REPORT INFORMATION
  Report Type: Spontaneous
  Country: DE (occurrence: DE)
  Receive Date: 20160701
  Receipt Date: 20160701
  Transmission Date: 20161109
  Serious: Yes (Congenital Anomaly)
  Sender: FDA-Public Use
  Company Number: DE-TEVA-670455GER

PATIENT
  Age: 1 Day
  Sex: Female
  Weight: 3.79 kg

DRUGS (1)
  1. CABERGOLIN [Suspect]
     Active Substance: CABERGOLINE
     Indication: RESTLESS LEGS SYNDROME
     Dosage: 2 MILLIGRAM DAILY;
     Route: 064

REACTIONS (2)
  - Malformation venous [Not Recovered/Not Resolved]
  - Foetal exposure during pregnancy [Unknown]

NARRATIVE: CASE EVENT DATE: 20151009
